FAERS Safety Report 17440900 (Version 1)
Quarter: 2020Q1

REPORT INFORMATION
  Report Type: Report from Study
  Country: US (occurrence: US)
  Receive Date: 20200220
  Receipt Date: 20200220
  Transmission Date: 20200409
  Serious: Yes (Hospitalization, Other)
  Sender: FDA-Public Use
  Company Number: PHHY2018US137720

PATIENT
  Age: 72 Year
  Sex: Female
  Weight: 63.95 kg

DRUGS (1)
  1. KYMRIAH [Suspect]
     Active Substance: TISAGENLECLEUCEL
     Indication: DIFFUSE LARGE B-CELL LYMPHOMA
     Dosage: 0.01188197 X 10^8 CELLS/KG
     Route: 042
     Dates: start: 20181008, end: 20181008

REACTIONS (5)
  - Malaise [Recovered/Resolved]
  - Neurotoxicity [Unknown]
  - Cytopenia [Not Recovered/Not Resolved]
  - Cytokine release syndrome [Recovered/Resolved]
  - Pyrexia [Recovered/Resolved]

NARRATIVE: CASE EVENT DATE: 20181020
